FAERS Safety Report 15124781 (Version 1)
Quarter: 2018Q3

REPORT INFORMATION
  Report Type: Spontaneous
  Country: US (occurrence: US)
  Receive Date: 20180710
  Receipt Date: 20180710
  Transmission Date: 20181010
  Serious: No
  Sender: FDA-Public Use
  Company Number: US-GLENMARK PHARMACEUTICALS-2018GMK035474

PATIENT

DRUGS (1)
  1. CLOTRIMAZOLE. [Suspect]
     Active Substance: CLOTRIMAZOLE
     Indication: VAGINAL DISORDER
     Dosage: 1 DF, UNK
     Route: 061
     Dates: start: 201802

REACTIONS (4)
  - Drug dose omission [Unknown]
  - Emotional distress [Unknown]
  - Inappropriate schedule of drug administration [Unknown]
  - Paraesthesia [Unknown]

NARRATIVE: CASE EVENT DATE: 201802
